FAERS Safety Report 7768536-3 (Version None)
Quarter: 2011Q3

REPORT INFORMATION
  Report Type: 
  Country: None (occurrence: None)
  Receive Date: 20110922
  Receipt Date: 20110615
  Transmission Date: 20111222
  Serious: Yes (Other)
  Sender: FDA-Public Use
  Company Number: US-ASTRAZENECA-2009UW21710

PATIENT
  Sex: Male

DRUGS (3)
  1. SEROQUEL [Suspect]
     Route: 048
  2. SEROQUEL [Suspect]
     Route: 048
     Dates: start: 20050101
  3. SEROQUEL [Suspect]
     Route: 048

REACTIONS (8)
  - DYSPNOEA [None]
  - MUSCLE TWITCHING [None]
  - MALAISE [None]
  - RASH [None]
  - NERVOUSNESS [None]
  - WEIGHT INCREASED [None]
  - URTICARIA [None]
  - BLOOD PRESSURE INCREASED [None]
